FAERS Safety Report 14527125 (Version 1)
Quarter: 2018Q1

REPORT INFORMATION
  Report Type: Spontaneous
  Country: JP (occurrence: JP)
  Receive Date: 20180213
  Receipt Date: 20180213
  Transmission Date: 20180509
  Serious: Yes (Death)
  Sender: FDA-Public Use
  Company Number: JP-SA-2018SA026072

PATIENT
  Age: 67 Year
  Sex: Female
  Weight: 53 kg

DRUGS (24)
  1. LEVOFOLINATE [Suspect]
     Active Substance: LEVOLEUCOVORIN CALCIUM
     Indication: PANCREATIC CARCINOMA
     Route: 041
     Dates: start: 20171106, end: 20171106
  2. 5-FU [Suspect]
     Active Substance: FLUOROURACIL
     Indication: PANCREATIC CARCINOMA
     Route: 040
     Dates: start: 20180117, end: 20180117
  3. LYRICA [Concomitant]
     Active Substance: PREGABALIN
     Route: 065
  4. BISOPROLOL [Concomitant]
     Active Substance: BISOPROLOL
  5. ZINGIBER OFFICINALE RHIZOME/SIMALDRATE/COPTIS TRIFOLIA/CALCIUM CARBONATE/SODIUM BICARBONATE/MENTHOL/ [Concomitant]
     Route: 048
  6. LOPERAMIDE HYDROCHLORIDE. [Concomitant]
     Active Substance: LOPERAMIDE HYDROCHLORIDE
     Route: 048
  7. ELPLAT [Suspect]
     Active Substance: OXALIPLATIN
     Indication: PANCREATIC CARCINOMA
     Dosage: INFUSION SOLUTION INJECTION
     Route: 041
     Dates: start: 20171106, end: 20171106
  8. CAMPTO [Suspect]
     Active Substance: IRINOTECAN
     Indication: PANCREATIC CARCINOMA
     Dosage: I.V. INFUSION INJECTION
     Route: 041
     Dates: start: 20171106, end: 20171106
  9. CELECOX [Concomitant]
     Active Substance: CELECOXIB
     Route: 065
  10. CALONAL [Concomitant]
     Active Substance: ACETAMINOPHEN
  11. CAMPTO [Suspect]
     Active Substance: IRINOTECAN
     Indication: PANCREATIC CARCINOMA
     Dosage: I.V. INFUSION INJECTION
     Route: 041
  12. FUROSEMIDE. [Concomitant]
     Active Substance: FUROSEMIDE
  13. ELPLAT [Suspect]
     Active Substance: OXALIPLATIN
     Indication: PANCREATIC CARCINOMA
     Dosage: INFUSION SOLUTION INJECTION
     Route: 041
  14. 5-FU [Suspect]
     Active Substance: FLUOROURACIL
     Indication: PANCREATIC CARCINOMA
     Route: 040
     Dates: start: 20171106, end: 20171106
  15. MAGMITT [Concomitant]
     Active Substance: MAGNESIUM OXIDE
     Route: 048
  16. ELPLAT [Suspect]
     Active Substance: OXALIPLATIN
     Indication: PANCREATIC CARCINOMA
     Dosage: INFUSION SOLUTION INJECTION
     Route: 041
     Dates: start: 20180117, end: 20180117
  17. 5-FU [Suspect]
     Active Substance: FLUOROURACIL
     Indication: PANCREATIC CARCINOMA
     Route: 041
     Dates: start: 20171106, end: 20171106
  18. NEXIUM [Concomitant]
     Active Substance: ESOMEPRAZOLE MAGNESIUM
     Route: 065
  19. LOSARTAN POTASSIUM. [Concomitant]
     Active Substance: LOSARTAN POTASSIUM
     Route: 065
  20. 5-FU [Suspect]
     Active Substance: FLUOROURACIL
     Indication: PANCREATIC CARCINOMA
     Route: 041
  21. LEVOFOLINATE [Suspect]
     Active Substance: LEVOLEUCOVORIN CALCIUM
     Indication: PANCREATIC CARCINOMA
     Route: 041
     Dates: start: 20180117, end: 20180117
  22. 5-FU [Suspect]
     Active Substance: FLUOROURACIL
     Indication: PANCREATIC CARCINOMA
     Route: 041
     Dates: start: 20180117, end: 20180117
  23. PITAVASTATIN CALCIUM [Concomitant]
     Active Substance: PITAVASTATIN CALCIUM
     Route: 065
  24. PRIMPERAN [Concomitant]
     Active Substance: METOCLOPRAMIDE HYDROCHLORIDE

REACTIONS (5)
  - Toxic encephalopathy [Fatal]
  - Abdominal discomfort [Unknown]
  - Tumour lysis syndrome [Fatal]
  - Cholinergic syndrome [Unknown]
  - Bone marrow failure [Unknown]

NARRATIVE: CASE EVENT DATE: 20180118
